FAERS Safety Report 25798974 (Version 3)
Quarter: 2025Q4

REPORT INFORMATION
  Report Type: Report from Study
  Country: EG (occurrence: EG)
  Receive Date: 20250913
  Receipt Date: 20251006
  Transmission Date: 20260118
  Serious: Yes (Death, Other)
  Sender: TAKEDA
  Company Number: EG-TAKEDA-2025TUS080130

PATIENT
  Age: 72 Year
  Sex: Male

DRUGS (1)
  1. IXAZOMIB [Suspect]
     Active Substance: IXAZOMIB
     Indication: Plasma cell myeloma recurrent
     Dosage: 4 MILLIGRAM
     Dates: start: 20240708, end: 20250205

REACTIONS (3)
  - Lower respiratory tract infection [Fatal]
  - Hypoventilation [Fatal]
  - Diabetes mellitus [Unknown]
